FAERS Safety Report 4890199-5 (Version None)
Quarter: 2006Q1

REPORT INFORMATION
  Report Type: 
  Country: None (occurrence: None)
  Receive Date: 20060124
  Receipt Date: 20050801
  Transmission Date: 20060701
  Serious: Yes (Hospitalization, Disabling)
  Sender: FDA-Public Use
  Company Number: US-MERCK-0508USA00926

PATIENT
  Age: 63 Year
  Sex: Female
  Weight: 57 kg

DRUGS (18)
  1. VIOXX [Suspect]
     Indication: ARTHRITIS
     Route: 048
     Dates: start: 20000701, end: 20010701
  2. ASPIRIN [Concomitant]
     Route: 048
  3. ZOLOFT [Concomitant]
     Route: 048
  4. ZYRTEC [Concomitant]
     Route: 048
  5. LASIX [Concomitant]
     Route: 048
  6. COZAAR [Concomitant]
     Route: 048
  7. COZAAR [Concomitant]
     Route: 048
  8. ATENOLOL [Concomitant]
     Route: 065
  9. ATIVAN [Concomitant]
     Route: 048
  10. PREMARIN [Concomitant]
     Route: 048
  11. [COMPOSITION UNSPECIFIED] [Concomitant]
     Route: 065
  12. LISINOPRIL [Concomitant]
     Route: 065
  13. HYDROCHLOROTHIAZIDE [Concomitant]
     Route: 065
  14. DIOVAN [Concomitant]
     Route: 065
  15. COUMADIN [Concomitant]
     Route: 065
  16. METOPROLOL [Concomitant]
     Route: 065
  17. ALDOMET [Concomitant]
     Route: 048
  18. TAGAMET [Concomitant]
     Route: 065

REACTIONS (31)
  - ANAEMIA [None]
  - ANOREXIA [None]
  - ARTHRITIS [None]
  - ASTHENIA [None]
  - CEREBROVASCULAR ACCIDENT [None]
  - CORONARY ARTERY DISEASE [None]
  - COUGH [None]
  - DEEP VEIN THROMBOSIS [None]
  - DILATATION ATRIAL [None]
  - ELECTROCARDIOGRAM QT PROLONGED [None]
  - FIBROMUSCULAR DYSPLASIA [None]
  - HELICOBACTER INFECTION [None]
  - HYPERTENSION [None]
  - HYPONATRAEMIA [None]
  - HYPOXIA [None]
  - OBESITY [None]
  - OEDEMA PERIPHERAL [None]
  - PEPTIC ULCER [None]
  - PERIPHERAL ARTERY ANEURYSM [None]
  - PNEUMONIA [None]
  - POST PROCEDURAL COMPLICATION [None]
  - PULMONARY EMBOLISM [None]
  - PYREXIA [None]
  - RENAL ARTERY DISSECTION [None]
  - RENAL ARTERY OCCLUSION [None]
  - RENAL ARTERY STENOSIS [None]
  - SINUS CONGESTION [None]
  - UMBILICAL HERNIA [None]
  - VASCULAR DEMENTIA [None]
  - VENTRICULAR EXTRASYSTOLES [None]
  - VENTRICULAR HYPERTROPHY [None]
